FAERS Safety Report 4926757-9 (Version None)
Quarter: 2006Q1

REPORT INFORMATION
  Report Type: 
  Country: None (occurrence: None)
  Receive Date: 20060228
  Receipt Date: 20050610
  Transmission Date: 20060701
  Serious: No
  Sender: FDA-Public Use
  Company Number: US-GLAXOSMITHKLINE-A0562100A

PATIENT
  Age: 58 Year
  Sex: Female

DRUGS (3)
  1. LAMICTAL [Suspect]
     Indication: BIPOLAR DISORDER
     Dosage: 100MG TWICE PER DAY
     Route: 048
     Dates: start: 20040101
  2. LEXAPRO [Suspect]
  3. KLONOPIN [Concomitant]
     Route: 065

REACTIONS (2)
  - BALANCE DISORDER [None]
  - HYPERHIDROSIS [None]
